FAERS Safety Report 25706707 (Version 3)
Quarter: 2025Q4

REPORT INFORMATION
  Report Type: Spontaneous
  Country: US (occurrence: US)
  Receive Date: 20250820
  Receipt Date: 20251015
  Transmission Date: 20260117
  Serious: No
  Sender: SANOFI AVENTIS
  Company Number: US-SA-2025SA246033

PATIENT
  Age: 7 Year
  Sex: Female

DRUGS (14)
  1. DUPIXENT [Suspect]
     Active Substance: DUPILUMAB
     Indication: Dermatitis
     Dosage: 400 MG, 1X
     Route: 058
     Dates: start: 20250801, end: 20250801
  2. DUPIXENT [Suspect]
     Active Substance: DUPILUMAB
     Dosage: 200 MG, QOW
     Route: 058
     Dates: start: 20250818, end: 20250818
  3. PREDNISONE [Concomitant]
     Active Substance: PREDNISONE
  4. OLOPATADINE [Concomitant]
     Active Substance: OLOPATADINE
     Dosage: 1 DROP/EYE TWICE DAILY PRN
  5. PATADAY [Concomitant]
     Active Substance: OLOPATADINE HYDROCHLORIDE
     Dosage: 1 DROP/EYE 1-2 TIMES DAILY PM
  6. COVID-19 vaccine [Concomitant]
  7. XOLAIR [Concomitant]
     Active Substance: OMALIZUMAB
  8. AZITHROMYCIN [Concomitant]
     Active Substance: AZITHROMYCIN
  9. FLONASE [Concomitant]
     Active Substance: FLUTICASONE PROPIONATE
     Dosage: 1 SPRAY/NOSTRIL DAILY PRN
  10. AVEENO [Concomitant]
     Active Substance: DIMETHICONE\HOMOSALATE\OCTINOXATE\OCTISALATE\TITANIUM DIOXIDE
     Dosage: 2-3 TIMES DAILY PM
  11. TRIAMCINOLONE [Concomitant]
     Active Substance: TRIAMCINOLONE
  12. INFLUENZA VIRUS VACCINE [Concomitant]
     Active Substance: INFLUENZA VIRUS VACCINE
  13. SYMBICORT [Concomitant]
     Active Substance: BUDESONIDE\FORMOTEROL FUMARATE DIHYDRATE
     Dosage: 60/4.5 MDI 2 PUFFS WITH SPACER TWICE DAILY
  14. CETIRIZINE [Concomitant]
     Active Substance: CETIRIZINE HYDROCHLORIDE
     Dosage: 10.000MG QD

REACTIONS (14)
  - Swelling [Recovered/Resolved]
  - Rhinitis [Unknown]
  - Sinus pain [Recovered/Resolved]
  - Upper respiratory tract infection [Unknown]
  - Cough [Recovered/Resolved]
  - Injection site rash [Unknown]
  - Rash [Recovered/Resolved]
  - Injection site swelling [Recovered/Resolved]
  - Asthma [Unknown]
  - Nasal congestion [Unknown]
  - Rhinorrhoea [Unknown]
  - Upper-airway cough syndrome [Unknown]
  - Wheezing [Unknown]
  - Product use in unapproved indication [Unknown]

NARRATIVE: CASE EVENT DATE: 20250101
